FAERS Safety Report 6803564-3 (Version None)
Quarter: 2010Q2

REPORT INFORMATION
  Report Type: 
  Country: None (occurrence: None)
  Receive Date: 20100628
  Receipt Date: 20100521
  Transmission Date: 20101027
  Serious: Yes (Disabling)
  Sender: FDA-Public Use
  Company Number: US-MERCK-1005USA03896

PATIENT
  Age: 14 Year
  Sex: Female

DRUGS (3)
  1. SINGULAIR [Suspect]
     Indication: ASTHMA
     Route: 048
  2. SINGULAIR [Suspect]
     Indication: HYPERSENSITIVITY
     Route: 048
  3. SYNTHROID [Concomitant]
     Route: 065

REACTIONS (16)
  - ABDOMINAL PAIN [None]
  - DEPRESSION [None]
  - DERMATITIS PSORIASIFORM [None]
  - FATIGUE [None]
  - FEELING ABNORMAL [None]
  - GASTROOESOPHAGEAL REFLUX DISEASE [None]
  - HEART RATE INCREASED [None]
  - HUNGER [None]
  - HYPOTHYROIDISM [None]
  - MENSTRUAL DISORDER [None]
  - MIGRAINE [None]
  - MOOD SWINGS [None]
  - NAUSEA [None]
  - NIGHTMARE [None]
  - PAIN IN EXTREMITY [None]
  - VOMITING [None]
